FAERS Safety Report 7647590-3 (Version None)
Quarter: 2011Q3

REPORT INFORMATION
  Report Type: 
  Country: None (occurrence: None)
  Receive Date: 20110801
  Receipt Date: 20090629
  Transmission Date: 20111222
  Serious: Yes (Death)
  Sender: FDA-Public Use
  Company Number: US-BAYER-US-2007-006379

PATIENT
  Age: 76 Year
  Sex: Female
  Weight: 85.261 kg

DRUGS (52)
  1. WARFARIN SODIUM [Concomitant]
     Dosage: PER INR RESULTS
     Dates: start: 20021007
  2. GLIPIZIDE [Concomitant]
     Dosage: 1.25 MG BID
     Route: 048
  3. HYZAAR [Concomitant]
     Indication: HYPERTENSION
     Dosage: 100/25 MG DAILY
     Dates: start: 20000201, end: 20001015
  4. NEXIUM [Concomitant]
     Dosage: 20 MG DAILY
     Route: 048
  5. COZAAR [Concomitant]
     Dosage: 50 MG DAILY
  6. EPOGEN [Concomitant]
     Dosage: 6000 SQ BIW  T/F
  7. FOLIC ACID [Concomitant]
  8. PROCRIT [Concomitant]
  9. METOLAZONE [Concomitant]
     Dosage: 5 MG BID
     Route: 048
  10. BETA BLOCKING AGENTS [Concomitant]
  11. FUROSEMIDE [Concomitant]
     Dosage: 80 MG BID
     Dates: start: 20010201, end: 20010415
  12. HYDROCODONE [Concomitant]
     Indication: PAIN
     Dates: start: 20010501
  13. METOPROLOL TARTRATE [Concomitant]
     Indication: HYPERTENSION
     Dates: start: 19990101, end: 20050601
  14. OXYCODONE HCL AND ACETAMINOPHEN [Concomitant]
     Indication: PAIN
  15. DISOPYRAMIDE [Concomitant]
     Indication: ARRHYTHMIA
     Dates: start: 19990101, end: 19991001
  16. ZITHROMAX [Concomitant]
     Indication: ANTIBIOTIC THERAPY
     Dates: start: 20010801, end: 20050101
  17. NEURONTIN [Concomitant]
     Dosage: 300 MG DAILY
     Route: 048
  18. TRAZODONE HYDROCHLORIDE [Concomitant]
     Dosage: 75 MG DAILY
  19. TRIAMTERENE AND HYDROCHLOROTHIAZIDE [Concomitant]
     Dosage: 37.5/25 MG BID
  20. SODIUM BICARBONATE [Concomitant]
  21. PRILOSEC [Concomitant]
     Dosage: 20 MG BID
  22. RENAPHRO [Concomitant]
  23. ZESTRIL [Concomitant]
     Indication: HYPERTENSION
     Dates: start: 20010301
  24. POTASSIUM CHLORIDE [Concomitant]
     Dosage: 20 MEQ DAILY
  25. MAGNEVIST [Suspect]
     Indication: NUCLEAR MAGNETIC RESONANCE IMAGING ABDOMINAL
     Dosage: 20 ML, 1 DOSE
     Route: 042
     Dates: start: 20010203, end: 20010203
  26. GLIPIZIDE [Concomitant]
     Indication: DIABETES MELLITUS
     Dosage: UNK, UNK
     Dates: start: 20010301, end: 20020915
  27. LEVOFLOXACIN [Concomitant]
     Indication: PNEUMONIA
     Dates: start: 20030101, end: 20050501
  28. HYDRALAZINE HCL [Concomitant]
     Indication: HYPERTENSION
     Dates: start: 20010201, end: 20010501
  29. WARFARIN [Concomitant]
     Dates: start: 20010201, end: 20050301
  30. ZAROXOLYN [Concomitant]
     Indication: HYPERTENSION
     Dates: start: 20010301, end: 20010401
  31. TYLENOL REGULAR [Concomitant]
     Dosage: PRN
  32. RIOPAN [Concomitant]
  33. MULTI-VITAMIN [Concomitant]
     Dosage: DAILY
  34. FERROUS SULFATE TAB [Concomitant]
     Dosage: 435 MG TID
  35. MAGNEVIST [Suspect]
     Indication: ANGIOGRAM PERIPHERAL
     Dosage: 60 ML, 1 DOSE
     Route: 042
     Dates: start: 20021001, end: 20021001
  36. LIPITOR [Concomitant]
     Indication: BLOOD CHOLESTEROL INCREASED
     Dates: start: 20010201, end: 20010501
  37. ZAROXOLYN [Concomitant]
     Dates: start: 20010301, end: 20010401
  38. OXILAN-300 [Concomitant]
     Indication: PRODUCT USED FOR UNKNOWN INDICATION
  39. NEPHROCAPS [Concomitant]
     Dosage: ONE DAILY
     Route: 048
  40. MAGNEVIST [Suspect]
     Indication: RENAL ARTERY STENOSIS
  41. ISOSORBIDE DINITRATE [Concomitant]
     Dates: start: 20010201
  42. MIDODRINE HYDROCHLORIDE [Concomitant]
     Indication: HYPOTENSION
  43. TRIMOX [Concomitant]
     Indication: ANTIBIOTIC THERAPY
     Dates: start: 20010901, end: 20040101
  44. LOPRESSOR [Concomitant]
     Dosage: 25 MG DAILY
     Route: 048
  45. MOTRIN [Concomitant]
     Dosage: PRN
  46. PHOSLO [Concomitant]
     Dosage: 667 MG TID
  47. ERYTHROMYCIN [Concomitant]
     Dates: start: 20040701, end: 20050701
  48. COUMADIN [Concomitant]
     Dosage: 5 MG DAILY
     Route: 048
  49. NIFEREX [Concomitant]
     Dosage: 150 MG DAILY
  50. BUSPAR [Concomitant]
     Dosage: 20 MG BID
  51. HYTRIN [Concomitant]
  52. NORPACE [Concomitant]
     Dosage: 100 MG BID

REACTIONS (24)
  - ANXIETY [None]
  - EMOTIONAL DISTRESS [None]
  - ANHEDONIA [None]
  - SUBCUTANEOUS NODULE [None]
  - MUSCLE ATROPHY [None]
  - PAIN [None]
  - PAIN IN EXTREMITY [None]
  - MUSCULOSKELETAL DISCOMFORT [None]
  - SKIN HYPERTROPHY [None]
  - GENERAL PHYSICAL HEALTH DETERIORATION [None]
  - CONJUNCTIVAL HYPERAEMIA [None]
  - NEPHROGENIC SYSTEMIC FIBROSIS [None]
  - SKIN HYPERPIGMENTATION [None]
  - FIBROSIS [None]
  - SCLERAL DISCOLOURATION [None]
  - AXONAL NEUROPATHY [None]
  - JOINT RANGE OF MOTION DECREASED [None]
  - MOBILITY DECREASED [None]
  - SENSORY LOSS [None]
  - JOINT CONTRACTURE [None]
  - MUSCLE TIGHTNESS [None]
  - SKIN INDURATION [None]
  - SKIN FIBROSIS [None]
  - DYSSTASIA [None]
